FAERS Safety Report 9992618 (Version 1)
Quarter: 2014Q1

REPORT INFORMATION
  Report Type: Spontaneous
  Country: FR (occurrence: FR)
  Receive Date: 20140310
  Receipt Date: 20140310
  Transmission Date: 20141002
  Serious: Yes (Other)
  Sender: FDA-Public Use
  Company Number: FR-BRISTOL-MYERS SQUIBB COMPANY-20371381

PATIENT
  Age: 84 Year
  Sex: Female

DRUGS (4)
  1. HYDREA CAPS 500 MG [Suspect]
     Indication: MYELODYSPLASTIC SYNDROME
     Dosage: 02FEB2014?INCREASED DOSE UPTO 3CAP/DAY FROM 3FEB14-4FEB14
     Route: 048
     Dates: start: 20140131
  2. ZYLORIC [Suspect]
     Dosage: INCREASED TO 6 TABLETS DAILY FROM 31-JAN-2014 TO 03-FEB-2014
     Route: 048
     Dates: start: 20140103
  3. NEBIVOLOL [Concomitant]
  4. LERCANIDIPINE [Concomitant]

REACTIONS (1)
  - Dermatitis exfoliative [Recovered/Resolved]
